FAERS Safety Report 5330857-1 (Version None)
Quarter: 2007Q2

REPORT INFORMATION
  Report Type: 
  Country: None (occurrence: None)
  Receive Date: 20070522
  Receipt Date: 20070516
  Transmission Date: 20071010
  Serious: Yes (Other)
  Sender: FDA-Public Use
  Company Number: AU-ELI_LILLY_AND_COMPANY-AU200704005692

PATIENT
  Age: 65 Year
  Sex: Male

DRUGS (3)
  1. CIALIS [Suspect]
     Indication: ERECTILE DYSFUNCTION
     Dosage: 10 MG, AS NEEDED
     Route: 048
     Dates: start: 20070304, end: 20070304
  2. DIAFORMIN [Concomitant]
     Dosage: 500 MG, 3/D
     Dates: start: 19960101
  3. TRAMADOL HCL [Concomitant]
     Dosage: UNK, AS NEEDED

REACTIONS (4)
  - BLINDNESS [None]
  - HYPOAESTHESIA FACIAL [None]
  - RETINAL HAEMORRHAGE [None]
  - TRANSIENT ISCHAEMIC ATTACK [None]
